FAERS Safety Report 10383390 (Version 1)
Quarter: 2014Q3

REPORT INFORMATION
  Report Type: Spontaneous
  Country: US (occurrence: US)
  Receive Date: 20140814
  Receipt Date: 20140814
  Transmission Date: 20150326
  Serious: Yes (Other)
  Sender: FDA-Public Use
  Company Number: US-AMGEN-USASP2014060947

PATIENT
  Age: 60 Year
  Sex: Female

DRUGS (1)
  1. ENBREL [Suspect]
     Active Substance: ETANERCEPT
     Indication: PSORIASIS
     Dosage: 50 MG, QWK
     Route: 065
     Dates: start: 20130601

REACTIONS (4)
  - Injection site nodule [Recovered/Resolved]
  - Lower respiratory tract infection [Recovered/Resolved]
  - Psoriasis [Recovered/Resolved]
  - Injection site erythema [Recovered/Resolved]
